FAERS Safety Report 8541722-0 (Version None)
Quarter: 2012Q3

REPORT INFORMATION
  Report Type: 
  Country: None (occurrence: None)
  Receive Date: 20120726
  Receipt Date: 20120719
  Transmission Date: 20120928
  Serious: Yes (Other)
  Sender: FDA-Public Use
  Company Number: US-BAYER-2012-039064

PATIENT
  Sex: Female

DRUGS (1)
  1. MIRENA [Suspect]
     Indication: CONTRACEPTION
     Dosage: 20 MCG/24HR, CONT
     Route: 015
     Dates: start: 20110601

REACTIONS (12)
  - INFECTION [None]
  - VAGINAL ODOUR [None]
  - WEIGHT INCREASED [None]
  - METRORRHAGIA [None]
  - ABDOMINAL PAIN [None]
  - VAGINAL DISCHARGE [None]
  - NAUSEA [None]
  - ABDOMINAL DISTENSION [None]
  - PAIN [None]
  - HEADACHE [None]
  - OVARIAN CYST RUPTURED [None]
  - ASCITES [None]
